FAERS Safety Report 5322916-4 (Version None)
Quarter: 2007Q1

REPORT INFORMATION
  Report Type: 
  Country: None (occurrence: None)
  Receive Date: 20070222
  Receipt Date: 20060217
  Transmission Date: 20070707
  Serious: Yes (Hospitalization, Other)
  Sender: FDA-Public Use
  Company Number: WAES 0512USA03909

PATIENT
  Age: 49 Year
  Sex: Male
  Weight: 135.6255 kg

DRUGS (2)
  1. PRIMAXIN [Suspect]
     Indication: DIABETIC FOOT
     Dosage: 2 DOSE/DAILY/IM
     Route: 030
     Dates: start: 20050822, end: 20050824
  2. PRIMAXIN [Suspect]
     Indication: FOOT AMPUTATION
     Dosage: 2 DOSE/DAILY/IM
     Route: 030
     Dates: start: 20050822, end: 20050824

REACTIONS (3)
  - INFECTION [None]
  - RASH [None]
  - URTICARIA [None]
